FAERS Safety Report 4417870-3 (Version None)
Quarter: 2004Q2

REPORT INFORMATION
  Report Type: 
  Country: None (occurrence: None)
  Receive Date: 20040621
  Receipt Date: 20040419
  Transmission Date: 20050107
  Serious: Yes (Other)
  Sender: FDA-Public Use
  Company Number: PHEH2004US04407

PATIENT
  Age: 84 Year
  Sex: Male

DRUGS (1)
  1. ZOMETA [Suspect]
     Indication: MULTIPLE MYELOMA
     Dosage: 4 MG, QMO , INTRAVENOUS
     Route: 042

REACTIONS (1)
  - OSTEONECROSIS [None]
